FAERS Safety Report 11251459 (Version 1)
Quarter: 2015Q3

REPORT INFORMATION
  Report Type: Spontaneous
  Country: US (occurrence: US)
  Receive Date: 20150708
  Receipt Date: 20150708
  Transmission Date: 20151125
  Serious: Yes (Hospitalization)
  Sender: FDA-Public Use
  Company Number: US-ELI_LILLY_AND_COMPANY-US201202008001

PATIENT
  Age: 49 Year

DRUGS (1)
  1. ALIMTA [Suspect]
     Active Substance: PEMETREXED DISODIUM
     Indication: BLADDER CANCER
     Dosage: 500 MG/M2, UNK

REACTIONS (2)
  - Stomatitis [Unknown]
  - Bone marrow failure [Unknown]
